FAERS Safety Report 9639531 (Version 2)
Quarter: 2014Q1

REPORT INFORMATION
  Report Type: Report from Study
  Country: IR (occurrence: IR)
  Receive Date: 20131023
  Receipt Date: 20140129
  Transmission Date: 20141002
  Serious: Yes (Death, Other)
  Sender: FDA-Public Use
  Company Number: IR-ROCHE-1291242

PATIENT
  Sex: 0

DRUGS (4)
  1. PEG-INTERFERON ALFA 2A [Suspect]
     Indication: HEPATITIS C
     Dosage: GROUP A
     Route: 058
  2. PEG-INTERFERON ALFA 2A [Suspect]
     Dosage: GROUP B, FOR DURATION OF 48 WEEKS
     Route: 058
  3. RIBAVIRIN [Suspect]
     Indication: HEPATITIS C
     Dosage: HEMOGLOBIN LEVEL OF 8-10 G/DL
     Route: 048
  4. RIBAVIRIN [Suspect]
     Dosage: HEMOGLOBIN LEVEL OF OVER 10 G/DL
     Route: 048

REACTIONS (5)
  - Sepsis [Fatal]
  - Diabetic ketoacidosis [Fatal]
  - Cardiac failure [Fatal]
  - Neutropenia [Unknown]
  - Thrombocytopenia [Unknown]
